FAERS Safety Report 9759573 (Version 2)
Quarter: 2015Q3

REPORT INFORMATION
  Report Type: Spontaneous
  Country: US (occurrence: US)
  Receive Date: 20131216
  Receipt Date: 20150806
  Transmission Date: 20151125
  Serious: No
  Sender: FDA-Public Use
  Company Number: US-GILEAD-2010-0028137

PATIENT
  Age: 52 Year
  Sex: Female
  Weight: 85.27 kg

DRUGS (15)
  1. ROBITUSSIN (GUAIFENESIN) [Concomitant]
     Active Substance: GUAIFENESIN
  2. REVATIO [Concomitant]
     Active Substance: SILDENAFIL CITRATE
  3. ACYCLOVIR. [Concomitant]
     Active Substance: ACYCLOVIR
  4. FUROSEMIDE. [Concomitant]
     Active Substance: FUROSEMIDE
  5. CEPHELEXIN [Concomitant]
  6. WARFARIN [Concomitant]
     Active Substance: WARFARIN
  7. PARACETAMOL/HYDROCODONE BITARTRATE [Concomitant]
  8. OXYCODONE [Concomitant]
     Active Substance: OXYCODONE
  9. OMEPRAZOLE. [Concomitant]
     Active Substance: OMEPRAZOLE
  10. KLOR-CON [Concomitant]
     Active Substance: POTASSIUM CHLORIDE
  11. LEXAPRO [Concomitant]
     Active Substance: ESCITALOPRAM OXALATE
  12. FERROUS SULFATE [Concomitant]
     Active Substance: FERROUS SULFATE\FERROUS SULFATE, DRIED
  13. CALCIUM [Concomitant]
     Active Substance: CALCIUM
  14. VITAMIN B12 [Concomitant]
     Active Substance: CYANOCOBALAMIN
  15. LETAIRIS [Suspect]
     Active Substance: AMBRISENTAN
     Indication: PULMONARY ARTERIAL HYPERTENSION
     Route: 048
     Dates: start: 20090715

REACTIONS (1)
  - Oedema [Unknown]
